FAERS Safety Report 5794294-8 (Version None)
Quarter: 2008Q2

REPORT INFORMATION
  Report Type: 
  Country: None (occurrence: None)
  Receive Date: 20080625
  Receipt Date: 20080612
  Transmission Date: 20081010
  Serious: Yes (Death)
  Sender: FDA-Public Use
  Company Number: 2008AL006834

PATIENT
  Age: 77 Year
  Sex: Male

DRUGS (9)
  1. DIGOXIN [Suspect]
     Indication: CARDIAC DISORDER
     Dosage: 0.25 MG, DAILY, PO
     Route: 048
     Dates: start: 19990101
  2. LANTUS [Concomitant]
  3. COREG [Concomitant]
  4. FUROSEMIDE [Concomitant]
  5. KLOR-CON [Concomitant]
  6. LIPITOR [Concomitant]
  7. LISINOPRIL [Concomitant]
  8. NIASPAN [Concomitant]
  9. PROSCAR [Concomitant]

REACTIONS (4)
  - ARRHYTHMIA [None]
  - CARDIAC FAILURE CONGESTIVE [None]
  - MYOCARDIAL ISCHAEMIA [None]
  - NAUSEA [None]
